FAERS Safety Report 9209411 (Version 2)
Quarter: 2014Q1

REPORT INFORMATION
  Report Type: Spontaneous
  Country: US (occurrence: US)
  Receive Date: 20130404
  Receipt Date: 20140103
  Transmission Date: 20141002
  Serious: Yes (Death, Hospitalization, Other)
  Sender: FDA-Public Use
  Company Number: US-PFIZER INC-2013010332

PATIENT
  Age: 68 Year
  Sex: Male
  Weight: 77.1 kg

DRUGS (10)
  1. RAPAMUNE [Suspect]
     Indication: LIVER TRANSPLANT
     Dosage: 1 MG, 3X/DAY (3 MG DAILY)
     Route: 048
     Dates: start: 20120802
  2. CALCITRIOL [Concomitant]
     Dosage: 0.25 UG, 1X/DAY
  3. WARFARIN [Concomitant]
     Dosage: 6 MG, UNK
  4. FISH OIL [Concomitant]
     Dosage: 1000 MG, 1X/DAY
  5. LANTUS [Concomitant]
     Indication: DIABETES MELLITUS
     Dosage: UNK
  6. SIMVASTATIN [Concomitant]
     Dosage: 80 MG, 1X/DAY
  7. CLONIDINE [Concomitant]
     Indication: HYPERTENSION
     Dosage: 0.2 MG, 2X/DAY
     Route: 048
  8. FUROSEMIDE [Concomitant]
     Dosage: 20 MG, 3X/DAY
  9. PREDNISONE [Concomitant]
     Dosage: 5 MG, ALTERNATE DAY
  10. CALCIUM [Concomitant]
     Dosage: 657 MG, UNK

REACTIONS (3)
  - Death [Fatal]
  - Toe amputation [Unknown]
  - Off label use [Unknown]
